FAERS Safety Report 5009216-7 (Version None)
Quarter: 2006Q2

REPORT INFORMATION
  Report Type: 
  Country: None (occurrence: None)
  Receive Date: 20060519
  Receipt Date: 20060515
  Transmission Date: 20061013
  Serious: Yes (Death, Other)
  Sender: FDA-Public Use
  Company Number: 200610043

PATIENT
  Age: 85 Year
  Sex: Female
  Weight: 60 kg

DRUGS (6)
  1. STREPTASE [Suspect]
     Indication: MYOCARDIAL INFARCTION
     Dosage: IV
     Route: 042
     Dates: start: 20050529, end: 20050529
  2. ASPIRIN [Suspect]
     Indication: MYOCARDIAL INFARCTION
     Dosage: 100 MG DAILY PO
     Route: 048
     Dates: start: 20050529
  3. ENOXAPARIN SODIUM [Suspect]
     Indication: MYOCARDIAL INFARCTION
     Dates: start: 20050529, end: 20050531
  4. ACETAMINOPHEN [Concomitant]
  5. OMEPRAZOL [Concomitant]
  6. SEGURIL [Concomitant]

REACTIONS (16)
  - ABDOMINAL PAIN UPPER [None]
  - ANAEMIA [None]
  - APNOEA [None]
  - BLOOD CREATINE PHOSPHOKINASE INCREASED [None]
  - CATHETER SITE RELATED REACTION [None]
  - ECCHYMOSIS [None]
  - ELECTROCARDIOGRAM Q WAVE ABNORMAL [None]
  - ELECTROMECHANICAL DISSOCIATION [None]
  - EXTRAVASATION [None]
  - IATROGENIC INJURY [None]
  - INJECTION SITE HAEMATOMA [None]
  - RENAL IMPAIRMENT [None]
  - SUDDEN DEATH [None]
  - URINE OUTPUT DECREASED [None]
  - VENTRICLE RUPTURE [None]
  - VENTRICULAR FIBRILLATION [None]
